FAERS Safety Report 8827473 (Version 1)
Quarter: 2012Q4

REPORT INFORMATION
  Report Type: Report from Study
  Country: CA (occurrence: CA)
  Receive Date: 20121008
  Receipt Date: 20121008
  Transmission Date: 20130627
  Serious: Yes (Hospitalization)
  Sender: FDA-Public Use
  Company Number: CA-JNJFOC-20120902282

PATIENT
  Age: 18 None
  Sex: Female
  Weight: 42 kg

DRUGS (6)
  1. REMICADE [Suspect]
     Indication: CROHN^S DISEASE
     Route: 042
     Dates: start: 20120412
  2. PREDNISONE [Concomitant]
     Route: 048
  3. IMURAN [Concomitant]
     Route: 048
  4. MULTIVITAMINS [Concomitant]
     Route: 065
  5. VITAMIN D [Concomitant]
     Route: 065
  6. CALCIUM CARBONATE [Concomitant]
     Route: 065

REACTIONS (2)
  - Pelvic abscess [Recovered/Resolved]
  - Ovarian cyst [Recovered/Resolved]
